FAERS Safety Report 8046367-7 (Version None)
Quarter: 2012Q1

REPORT INFORMATION
  Report Type: 
  Country: None (occurrence: None)
  Receive Date: 20120113
  Receipt Date: 20120110
  Transmission Date: 20120608
  Serious: No
  Sender: FDA-Public Use
  Company Number: US-PFIZER INC-2005137398

PATIENT
  Age: 47 Year
  Sex: Male
  Weight: 74.84 kg

DRUGS (20)
  1. VITAMIN D [Concomitant]
     Route: 065
  2. MINERALS NOS [Concomitant]
     Route: 065
  3. CALCIUM [Concomitant]
     Route: 065
  4. ANAFRANIL [Concomitant]
     Dosage: 25 MG, UNK
     Route: 065
  5. ZYPREXA [Concomitant]
     Indication: INSOMNIA
     Dosage: 5 MG, AS NEEDED
     Route: 065
  6. VITAMIN C [Concomitant]
     Route: 065
  7. GEODON [Interacting]
     Dosage: 80 MG, 2X/DAY
     Route: 048
     Dates: end: 20060117
  8. VITAMIN E [Concomitant]
     Route: 065
  9. VITAMIN A [Concomitant]
     Route: 065
  10. HALDOL [Concomitant]
     Route: 065
  11. GERMANIUM [Concomitant]
     Dosage: UNK
  12. MAGNESIUM [Concomitant]
     Route: 065
  13. GEODON [Interacting]
     Indication: SCHIZOPHRENIA
     Dosage: 20 MG, 2X/DAY
     Dates: start: 20050101
  14. GEODON [Interacting]
     Indication: OBSESSIVE-COMPULSIVE DISORDER
     Dosage: 40 MG, 2X/DAY
  15. GEODON [Interacting]
     Indication: HALLUCINATION
     Dosage: 60 MG, 2X/DAY
  16. VITAMIN B COMPLEX CAP [Interacting]
     Dosage: 50 MG, UNK
     Route: 065
  17. PAXIL [Concomitant]
     Dosage: ONE-HALF OF A TABLET
     Route: 065
  18. NEURONTIN [Suspect]
     Route: 065
  19. VITAMIN B6 [Interacting]
     Route: 065
  20. ZINC [Concomitant]
     Route: 065

REACTIONS (8)
  - OBSESSIVE-COMPULSIVE DISORDER [None]
  - MANIA [None]
  - AGITATION [None]
  - DISEASE PROGRESSION [None]
  - HALLUCINATION, VISUAL [None]
  - TOXICITY TO VARIOUS AGENTS [None]
  - DRUG INTERACTION [None]
  - DRUG INEFFECTIVE [None]
